FAERS Safety Report 16876633 (Version 2)
Quarter: 2019Q4

REPORT INFORMATION
  Report Type: Spontaneous
  Country: US (occurrence: US)
  Receive Date: 20191002
  Receipt Date: 20191008
  Transmission Date: 20200122
  Serious: Yes (Hospitalization)
  Sender: FDA-Public Use
  Company Number: US-HORIZON-RAV-0303-2019

PATIENT
  Age: 6 Month
  Sex: Female

DRUGS (2)
  1. CARBAGLU [Concomitant]
     Active Substance: CARGLUMIC ACID
  2. RAVICTI [Suspect]
     Active Substance: GLYCEROL PHENYLBUTYRATE
     Indication: UREA CYCLE DISORDER
     Dosage: 1.3ML EVERY 8 HOURS
     Route: 048

REACTIONS (1)
  - Ammonia increased [Not Recovered/Not Resolved]
